FAERS Safety Report 16878403 (Version 1)
Quarter: 2019Q4

REPORT INFORMATION
  Report Type: Spontaneous
  Country: BR (occurrence: BR)
  Receive Date: 20191002
  Receipt Date: 20191002
  Transmission Date: 20200122
  Serious: Yes (Disabling, Other)
  Sender: FDA-Public Use
  Company Number: PHHY2019BR227153

PATIENT
  Age: 99 Year
  Sex: Female

DRUGS (1)
  1. DIOVAN [Suspect]
     Active Substance: VALSARTAN
     Indication: PRODUCT USED FOR UNKNOWN INDICATION
     Route: 065

REACTIONS (5)
  - Hemiplegia [Not Recovered/Not Resolved]
  - Hypertension [Unknown]
  - Diabetes mellitus [Unknown]
  - Dementia Alzheimer^s type [Unknown]
  - Cerebrovascular accident [Unknown]
